FAERS Safety Report 6090401-0 (Version None)
Quarter: 2009Q1

REPORT INFORMATION
  Report Type: 
  Country: None (occurrence: None)
  Receive Date: 20090224
  Receipt Date: 20081217
  Transmission Date: 20090719
  Serious: No
  Sender: FDA-Public Use
  Company Number: US-ABBOTT-08P-163-0495017-00

PATIENT
  Sex: Female

DRUGS (11)
  1. SIMCOR [Suspect]
     Indication: BLOOD TRIGLYCERIDES INCREASED
     Dates: start: 20081101
  2. SIMCOR [Suspect]
     Indication: LOW DENSITY LIPOPROTEIN INCREASED
  3. HERBAL GI DETOX [Suspect]
     Indication: DRUG USE FOR UNKNOWN INDICATION
  4. ROZEREM [Concomitant]
     Indication: DRUG USE FOR UNKNOWN INDICATION
  5. NATURE-THROID [Concomitant]
     Indication: DRUG USE FOR UNKNOWN INDICATION
  6. IODORAL [Concomitant]
     Indication: DRUG USE FOR UNKNOWN INDICATION
  7. D3-5 [Concomitant]
     Indication: DRUG USE FOR UNKNOWN INDICATION
  8. MULTI-VITAMINS [Concomitant]
     Indication: DRUG USE FOR UNKNOWN INDICATION
  9. PYRIDOXINE HCL [Concomitant]
     Indication: DRUG USE FOR UNKNOWN INDICATION
  10. VITAMIN B-12 [Concomitant]
     Indication: DRUG USE FOR UNKNOWN INDICATION
  11. FISH OIL [Concomitant]
     Indication: DRUG USE FOR UNKNOWN INDICATION

REACTIONS (3)
  - FLUSHING [None]
  - RASH [None]
  - RASH PRURITIC [None]
